FAERS Safety Report 9467696 (Version 2)
Quarter: 2013Q4

REPORT INFORMATION
  Report Type: Spontaneous
  Country: US (occurrence: US)
  Receive Date: 20130821
  Receipt Date: 20131022
  Transmission Date: 20140711
  Serious: Yes (Other)
  Sender: FDA-Public Use
  Company Number: US-BAYER-2013-100597

PATIENT
  Age: 25 Year
  Sex: Female
  Weight: 54.42 kg

DRUGS (2)
  1. MIRENA [Suspect]
     Indication: CONTRACEPTION
     Dosage: 20 MCG/24HR, CONT
     Route: 015
     Dates: start: 20111221, end: 20130301
  2. FLINTSTONES [Concomitant]
     Dosage: 2 EVERY DAY
     Route: 048

REACTIONS (9)
  - Uterine perforation [None]
  - Genital haemorrhage [None]
  - Pregnancy with contraceptive device [None]
  - Drug ineffective [None]
  - Emotional distress [None]
  - Device issue [None]
  - Injury [None]
  - Abdominal pain [None]
  - Mental disorder [None]
